FAERS Safety Report 4976010-2 (Version None)
Quarter: 2006Q2

REPORT INFORMATION
  Report Type: 
  Country: None (occurrence: None)
  Receive Date: 20060412
  Receipt Date: 20060321
  Transmission Date: 20061013
  Serious: Yes (Hospitalization)
  Sender: FDA-Public Use
  Company Number: 200610375BVD

PATIENT
  Age: 58 Year
  Sex: Female
  Weight: 76 kg

DRUGS (11)
  1. CIPROFLOXACIN HCL [Suspect]
     Indication: WOUND INFECTION
     Dosage: 1000 MG, TOTAL DAILY, ORAL
     Route: 048
     Dates: start: 20060223, end: 20060302
  2. CIPROFLOXACIN HCL [Suspect]
     Indication: WOUND INFECTION
     Dosage: 400 MG, TOTAL DAILY, INTRAVENOUS
     Route: 042
     Dates: start: 20060217, end: 20060222
  3. FLUOROURACIL [Suspect]
     Dosage: SEE IMAGE
     Route: 042
     Dates: start: 20051114
  4. FLUOROURACIL [Suspect]
     Dosage: SEE IMAGE
     Route: 042
     Dates: start: 20051205
  5. FLUOROURACIL [Suspect]
     Dosage: SEE IMAGE
     Route: 042
     Dates: start: 20051227
  6. CYCLOPHOSPHAMIDE [Suspect]
     Dosage: SEE IMAGE
     Route: 042
     Dates: start: 20051114
  7. CYCLOPHOSPHAMIDE [Suspect]
     Dosage: SEE IMAGE
     Route: 042
     Dates: start: 20051205
  8. CYCLOPHOSPHAMIDE [Suspect]
     Dosage: SEE IMAGE
     Route: 042
     Dates: start: 20051227
  9. TAXOTERE [Suspect]
     Dosage: SEE IMAGE
     Route: 042
     Dates: start: 20060116
  10. TAXOTERE [Suspect]
     Dosage: SEE IMAGE
     Route: 042
     Dates: start: 20060206
  11. METRONIDAZOLE [Concomitant]

REACTIONS (1)
  - WOUND DEHISCENCE [None]
